FAERS Safety Report 22136947 (Version 2)
Quarter: 2023Q2

REPORT INFORMATION
  Report Type: Report from Study
  Country: US (occurrence: US)
  Receive Date: 20230324
  Receipt Date: 20230424
  Transmission Date: 20230721
  Serious: Yes (Hospitalization)
  Sender: FDA-Public Use
  Company Number: US-KARYOPHARM-2023KPT000981

PATIENT
  Age: 85 Year
  Sex: Male
  Weight: 71.1 kg

DRUGS (9)
  1. SELINEXOR [Suspect]
     Active Substance: SELINEXOR
     Indication: Transitional cell carcinoma
     Dosage: 80 MG, WEEKLY
     Route: 048
     Dates: start: 20221104, end: 20230314
  2. SELINEXOR [Suspect]
     Active Substance: SELINEXOR
     Dosage: 60 MG, WEEKLY
     Route: 048
     Dates: start: 20230404
  3. PEMBROLIZUMAB [Suspect]
     Active Substance: PEMBROLIZUMAB
     Indication: Transitional cell carcinoma
     Dosage: 200 MG, EVERY 21 DAYS
     Route: 042
     Dates: start: 20221104
  4. PROPRANOLOL [Concomitant]
     Active Substance: PROPRANOLOL HYDROCHLORIDE
     Indication: Anxiety
     Dosage: 10 MG, BID
     Route: 048
     Dates: start: 20210617
  5. OLANZAPINE [Concomitant]
     Active Substance: OLANZAPINE
     Indication: Prophylaxis
     Dosage: 2.5 MG, QD
     Route: 048
     Dates: start: 20221212
  6. ONDANSETRON [Concomitant]
     Active Substance: ONDANSETRON
     Indication: Nausea
     Dosage: 8 MG, PRIOR TO STUDY DRUG
     Route: 048
     Dates: start: 20230113
  7. AUGMENTIN [Concomitant]
     Active Substance: AMOXICILLIN\CLAVULANATE POTASSIUM
     Indication: Urinary tract infection
     Dosage: 875 MG/125 MG, BID
     Route: 048
     Dates: start: 20230306, end: 20230313
  8. TAMSULOSIN [Concomitant]
     Active Substance: TAMSULOSIN
     Indication: Bladder cancer
     Dosage: 0.4 MG, QD
     Route: 048
     Dates: start: 20230210
  9. SENNA LAXATIVE [Concomitant]
     Active Substance: SENNOSIDES
     Indication: Constipation
     Dosage: 8.6 MG, QD
     Route: 048
     Dates: start: 20221107

REACTIONS (2)
  - Sepsis [Recovered/Resolved]
  - Pneumonia [Recovered/Resolved]

NARRATIVE: CASE EVENT DATE: 20230314
